FAERS Safety Report 12310795 (Version 3)
Quarter: 2016Q2

REPORT INFORMATION
  Report Type: Spontaneous
  Country: FR (occurrence: FR)
  Receive Date: 20160427
  Receipt Date: 20160616
  Transmission Date: 20160815
  Serious: Yes (Other)
  Sender: FDA-Public Use
  Company Number: PHHY2015FR166861

PATIENT
  Age: 85 Year
  Sex: Male

DRUGS (2)
  1. FORADIL [Suspect]
     Active Substance: FORMOTEROL FUMARATE
     Indication: ASTHMA
     Dosage: 1 DF (IN THE EVENING)
     Route: 055
     Dates: start: 1986
  2. QVAR [Concomitant]
     Active Substance: BECLOMETHASONE DIPROPIONATE
     Indication: PRODUCT USED FOR UNKNOWN INDICATION
     Dosage: UNK
     Route: 065

REACTIONS (6)
  - Intestinal obstruction [Recovered/Resolved]
  - Wrong technique in product usage process [Unknown]
  - Cough [Recovered/Resolved]
  - Metastases to liver [Not Recovered/Not Resolved]
  - Colon cancer [Not Recovered/Not Resolved]
  - Weight decreased [Unknown]

NARRATIVE: CASE EVENT DATE: 2015
